FAERS Safety Report 13013132 (Version 1)
Quarter: 2016Q4

REPORT INFORMATION
  Report Type: Spontaneous
  Country: US (occurrence: US)
  Receive Date: 20161208
  Receipt Date: 20161208
  Transmission Date: 20170207
  Serious: Yes (Hospitalization)
  Sender: FDA-Public Use
  Company Number: None

PATIENT
  Age: 37 Year
  Sex: Male
  Weight: 98 kg

DRUGS (7)
  1. CYTARABINE. [Suspect]
     Active Substance: CYTARABINE
     Dates: end: 20161118
  2. DAUNORUBICIN [Suspect]
     Active Substance: DAUNORUBICIN
     Dates: end: 20161205
  3. DEXAMETHASONE. [Suspect]
     Active Substance: DEXAMETHASONE
     Dates: end: 20161206
  4. VINCRISTINE SULFATE. [Suspect]
     Active Substance: VINCRISTINE SULFATE
     Dates: end: 20161205
  5. AMBISOME [Concomitant]
     Active Substance: AMPHOTERICIN B
  6. VANCOMYCIN [Concomitant]
     Active Substance: VANCOMYCIN
  7. METHOTREXATE. [Suspect]
     Active Substance: METHOTREXATE
     Dates: end: 20161205

REACTIONS (9)
  - Mental status changes [None]
  - Slow response to stimuli [None]
  - Somnolence [None]
  - Slow speech [None]
  - Dialysis [None]
  - Metabolic acidosis [None]
  - Azotaemia [None]
  - Condition aggravated [None]
  - Infection [None]

NARRATIVE: CASE EVENT DATE: 20161206
